FAERS Safety Report 4732472-7 (Version None)
Quarter: 2005Q3

REPORT INFORMATION
  Report Type: 
  Country: None (occurrence: None)
  Receive Date: 20050803
  Receipt Date: 20050722
  Transmission Date: 20060218
  Serious: Yes (Death)
  Sender: FDA-Public Use
  Company Number: FR-JNJFOC-20050800045

PATIENT
  Age: 76 Year
  Sex: Female

DRUGS (13)
  1. TOPALGIC [Suspect]
     Indication: DRUG USE FOR UNKNOWN INDICATION
     Route: 048
  2. PREVISCAN [Suspect]
     Indication: HEART VALVE REPLACEMENT
     Route: 048
  3. ALLOPURINOL [Suspect]
     Indication: DRUG USE FOR UNKNOWN INDICATION
     Route: 048
  4. OMEPRAZOLE [Concomitant]
     Route: 048
  5. LASIX [Concomitant]
     Route: 048
  6. CARDENSIEL [Concomitant]
     Route: 048
  7. HEMIDIGOXINE [Concomitant]
     Route: 048
  8. ALDACTONE [Concomitant]
     Route: 048
  9. KALEORID [Concomitant]
     Route: 048
  10. MUCOMYST [Concomitant]
     Route: 048
  11. FLIXOTIDE [Concomitant]
     Route: 055
  12. SEREVENT [Concomitant]
     Route: 055
  13. CLONAZEPAM [Concomitant]
     Route: 048

REACTIONS (2)
  - GASTROINTESTINAL HAEMORRHAGE [None]
  - INTERNATIONAL NORMALISED RATIO INCREASED [None]
